FAERS Safety Report 7593083-1 (Version None)
Quarter: 2011Q3

REPORT INFORMATION
  Report Type: 
  Country: None (occurrence: None)
  Receive Date: 20110706
  Receipt Date: 20110627
  Transmission Date: 20111222
  Serious: Yes (Other)
  Sender: FDA-Public Use
  Company Number: PT-ASTRAZENECA-2011SE39747

PATIENT
  Age: 13 Year
  Sex: Male

DRUGS (4)
  1. CEFTRIAXONE [Suspect]
  2. CLINDAMYCIN [Concomitant]
  3. VANCOMYCIN [Concomitant]
  4. MEROPENEM [Suspect]

REACTIONS (1)
  - TYPE IV HYPERSENSITIVITY REACTION [None]
